FAERS Safety Report 8483420-8 (Version None)
Quarter: 2012Q3

REPORT INFORMATION
  Report Type: 
  Country: None (occurrence: None)
  Receive Date: 20120702
  Receipt Date: 20120621
  Transmission Date: 20120928
  Serious: Yes (Hospitalization)
  Sender: FDA-Public Use
  Company Number: US-CELGENEUS-163-AB007-12052161

PATIENT
  Sex: Male
  Weight: 51.9 kg

DRUGS (28)
  1. ABRAXANE [Suspect]
     Dosage: 125 MILLIGRAM/SQ. METER
     Route: 041
     Dates: start: 20120124
  2. GEMCITABINE [Suspect]
     Dosage: 1000 MILLIGRAM/SQ. METER
     Route: 041
     Dates: start: 20120508, end: 20120515
  3. MULTI-VITAMINS [Concomitant]
     Indication: SUPPLEMENTATION THERAPY
     Route: 048
     Dates: start: 19900101
  4. PROCHLORPERAZINE [Concomitant]
     Dosage: 10 MILLIGRAM
     Route: 048
     Dates: start: 20120111
  5. MORPHINE SULFATE [Concomitant]
     Indication: ABDOMINAL PAIN
     Dosage: 15 MILLIGRAM
     Route: 048
     Dates: start: 20120120
  6. OXYCONTIN [Concomitant]
     Indication: ABDOMINAL PAIN
     Dosage: 30 MILLIGRAM
     Route: 048
     Dates: start: 20120214
  7. ZOFRAN [Concomitant]
     Dosage: 8 MILLIGRAM
     Route: 048
     Dates: start: 20120111
  8. ASPIRIN [Concomitant]
     Indication: SUPPLEMENTATION THERAPY
     Dosage: 81 MILLIGRAM
     Route: 048
     Dates: start: 19900101, end: 20120111
  9. VICODIN [Concomitant]
     Indication: ABDOMINAL PAIN
     Dosage: 10/500
     Route: 048
     Dates: start: 20111201, end: 20120120
  10. NAPROXEN (ALEVE) [Concomitant]
     Indication: ABDOMINAL PAIN
     Dosage: 220 MILLIGRAM
     Route: 048
     Dates: start: 20111201, end: 20120111
  11. NYSTATIN [Concomitant]
     Dosage: 100000 UNITS/ML
     Route: 048
     Dates: start: 20120228
  12. LACTULOSE [Concomitant]
     Dosage: 10 GRAM
     Route: 048
     Dates: start: 20111201, end: 20120210
  13. ATORVASTATIN [Concomitant]
     Dosage: 10 MILLIGRAM
     Route: 048
     Dates: start: 19990101
  14. CREON [Concomitant]
     Dosage: 24000 UNIT
     Route: 048
     Dates: start: 20120228
  15. RED BLOOD CELL TRANSFUSION [Concomitant]
     Dosage: 2 UNITS
     Route: 041
     Dates: start: 20120516, end: 20120516
  16. MIRALAX [Concomitant]
     Indication: CONSTIPATION
     Dosage: 17 GRAM
     Route: 048
     Dates: start: 20111201, end: 20120210
  17. ABRAXANE [Suspect]
     Dosage: 125 MILLIGRAM/SQ. METER
     Route: 041
     Dates: start: 20120508, end: 20120515
  18. ONDANSETRON [Concomitant]
     Dosage: 8 MILLIGRAM
     Route: 048
     Dates: start: 20120111
  19. PROCHLORPERAZINE [Concomitant]
     Indication: VOMITING
  20. DEXAMETHASONE [Concomitant]
     Indication: FATIGUE
     Dosage: 1 MILLIGRAM
     Route: 048
     Dates: start: 20120313
  21. OXYCODONE HCL [Concomitant]
     Indication: ABDOMINAL PAIN
     Dosage: 1-2
     Route: 048
     Dates: start: 20120120
  22. COLACE [Concomitant]
     Indication: CONSTIPATION
     Dosage: 100 MILLIGRAM
     Route: 048
     Dates: start: 20120210
  23. SENNA-MINT WAF [Concomitant]
     Indication: CONSTIPATION
     Dosage: 15 MILLIGRAM
     Route: 048
     Dates: start: 20120210
  24. OMEPRAZOLE [Concomitant]
     Dosage: 20 MILLIGRAM
     Route: 048
     Dates: start: 20120228
  25. RANITIDINE [Concomitant]
     Dosage: 150 MILLIGRAM
     Route: 048
     Dates: start: 20111201, end: 20120228
  26. CITALOPRAM HYDROBROMIDE [Concomitant]
     Indication: DEPRESSION
     Route: 048
     Dates: start: 20110101, end: 20120201
  27. GEMCITABINE [Suspect]
     Dosage: 1000 MILLIGRAM/SQ. METER
     Route: 041
     Dates: start: 20120124
  28. MIRTAZAPINE [Concomitant]
     Route: 048

REACTIONS (1)
  - COLITIS [None]
